FAERS Safety Report 16259997 (Version 1)
Quarter: 2019Q2

REPORT INFORMATION
  Report Type: Spontaneous
  Country: US (occurrence: US)
  Receive Date: 20190430
  Receipt Date: 20190430
  Transmission Date: 20190711
  Serious: Yes (Hospitalization)
  Sender: FDA-Public Use
  Company Number: None

PATIENT
  Age: 40 Year
  Sex: Male
  Weight: 184 kg

DRUGS (7)
  1. APIXABAN [Suspect]
     Active Substance: APIXABAN
     Route: 048
     Dates: start: 20190418, end: 20190428
  2. FLUOXETINE [Concomitant]
     Active Substance: FLUOXETINE HYDROCHLORIDE
  3. METHADONE 5 MG [Concomitant]
  4. GABAPENTIN 300 MG [Concomitant]
     Active Substance: GABAPENTIN
  5. LISINOPRIL 20 MG [Concomitant]
     Active Substance: LISINOPRIL
  6. NORCO [Concomitant]
     Active Substance: ACETAMINOPHEN\HYDROCODONE BITARTRATE
  7. ACETAMINPHEN 500 MG [Concomitant]

REACTIONS (3)
  - Deep vein thrombosis [None]
  - Drug ineffective [None]
  - Pulmonary embolism [None]

NARRATIVE: CASE EVENT DATE: 20190429
